FAERS Safety Report 9925820 (Version 1)
Quarter: 2014Q1

REPORT INFORMATION
  Report Type: Spontaneous
  Country: FR (occurrence: FR)
  Receive Date: 20140226
  Receipt Date: 20140226
  Transmission Date: 20141002
  Serious: Yes (Other)
  Sender: FDA-Public Use
  Company Number: FR-SA-2014SA020321

PATIENT
  Age: 59 Year
  Sex: Male

DRUGS (1)
  1. JEVTANA [Suspect]
     Indication: PROSTATE CANCER
     Dosage: FORM: SOLUTION
     Route: 042

REACTIONS (1)
  - Metastases to meninges [Not Recovered/Not Resolved]
